FAERS Safety Report 5940022-2 (Version None)
Quarter: 2008Q4

REPORT INFORMATION
  Report Type: 
  Country: None (occurrence: None)
  Receive Date: 20081104
  Receipt Date: 20081021
  Transmission Date: 20090506
  Serious: Yes (Disabling)
  Sender: FDA-Public Use
  Company Number: PHHY2008JP22791

PATIENT
  Sex: Male

DRUGS (3)
  1. TEGRETOL [Suspect]
     Indication: CONVULSION
     Dosage: UNK
     Route: 048
  2. PHENOBARBITAL TAB [Concomitant]
     Route: 048
  3. HYSERENIN [Concomitant]
     Route: 048

REACTIONS (2)
  - BEDRIDDEN [None]
  - POOR DENTAL CONDITION [None]
